FAERS Safety Report 8226736-2 (Version None)
Quarter: 2012Q1

REPORT INFORMATION
  Report Type: 
  Country: None (occurrence: None)
  Receive Date: 20120322
  Receipt Date: 20120314
  Transmission Date: 20120608
  Serious: Yes (Hospitalization)
  Sender: FDA-Public Use
  Company Number: US-BAYER-2011-049141

PATIENT
  Age: 31 Year
  Sex: Female

DRUGS (2)
  1. YASMIN [Suspect]
     Dosage: UNK
     Dates: start: 20050601, end: 20050801
  2. CYCLOBENZAPRINE HCL [Concomitant]
     Dosage: 10 MG, UNK

REACTIONS (7)
  - PAIN [None]
  - ANXIETY [None]
  - PULMONARY EMBOLISM [None]
  - EMOTIONAL DISTRESS [None]
  - DEEP VEIN THROMBOSIS [None]
  - INJURY [None]
  - THROMBOSIS [None]
